FAERS Safety Report 17135219 (Version 2)
Quarter: 2019Q4

REPORT INFORMATION
  Report Type: Spontaneous
  Country: IN (occurrence: IN)
  Receive Date: 20191210
  Receipt Date: 20191220
  Transmission Date: 20200122
  Serious: Yes (Death, Other)
  Sender: FDA-Public Use
  Company Number: IN-ADIENNEP-2019AD000618

PATIENT
  Age: 15 Year
  Sex: Female

DRUGS (4)
  1. TREOSULFAN [Suspect]
     Active Substance: TREOSULFAN
     Indication: ALLOGENIC STEM CELL TRANSPLANTATION
  2. FLUDARABINE [Suspect]
     Active Substance: FLUDARABINE PHOSPHATE
     Indication: ALLOGENIC STEM CELL TRANSPLANTATION
  3. ANTITHYMOCYTE IMMUNOGLOBULIN [Suspect]
     Active Substance: THYMOCYTE IMMUNE GLOBULIN NOS
     Indication: ALLOGENIC STEM CELL TRANSPLANTATION
  4. THIOTEPA. [Suspect]
     Active Substance: THIOTEPA
     Indication: ALLOGENIC STEM CELL TRANSPLANTATION

REACTIONS (9)
  - Adenovirus infection [Unknown]
  - Rhinovirus infection [Unknown]
  - Bacterial sepsis [Fatal]
  - Acute kidney injury [Unknown]
  - Graft versus host disease in gastrointestinal tract [Unknown]
  - Fungal sepsis [Fatal]
  - Respiratory syncytial virus infection [Unknown]
  - Graft versus host disease in skin [Unknown]
  - Parainfluenzae virus infection [Unknown]
